FAERS Safety Report 20742233 (Version 1)
Quarter: 2022Q2

REPORT INFORMATION
  Report Type: Spontaneous
  Country: US (occurrence: None)
  Receive Date: 20220423
  Receipt Date: 20220423
  Transmission Date: 20220721
  Serious: No
  Sender: FDA-Public Use
  Company Number: 2022A135652

PATIENT
  Age: 851 Month
  Sex: Male
  Weight: 86.2 kg

DRUGS (1)
  1. BREZTRI [Suspect]
     Active Substance: BUDESONIDE\FORMOTEROL\GLYCOPYRROLATE
     Indication: Chronic obstructive pulmonary disease
     Dosage: 2 PUFFS TWICE EACH DAY
     Route: 055
     Dates: start: 202112

REACTIONS (5)
  - Cataract [Unknown]
  - Wrong technique in device usage process [Unknown]
  - Product dose omission issue [Recovered/Resolved]
  - Device use issue [Unknown]
  - Device malfunction [Unknown]

NARRATIVE: CASE EVENT DATE: 20211201
